FAERS Safety Report 9843549 (Version 1)
Quarter: 2013Q4

REPORT INFORMATION
  Report Type: Spontaneous
  Country: US (occurrence: None)
  Receive Date: 20131219
  Receipt Date: 20131219
  Transmission Date: 20140711
  Serious: Yes (Hospitalization)
  Sender: FDA-Public Use
  Company Number: 163-20785-13032952

PATIENT
  Age: 67 Year
  Sex: Male

DRUGS (5)
  1. THALOMID (THALIDOMIDE) (100 MILLIGRAM, CAPSULES) [Suspect]
     Indication: PLASMA CELL MYELOMA
     Route: 048
     Dates: start: 20130114
  2. AMLODIPINE BESYLATE (AMLODIPINE BESILATE) [Concomitant]
  3. BETHANECHOL CHLORIDE (BETHANECHOL CHLORIDE) [Concomitant]
  4. TRIAMTERENE-HCTZ (DYAZIDE) [Concomitant]
  5. VELCADE (BORTEZOMIB) [Concomitant]

REACTIONS (1)
  - Hypocalcaemia [None]
